FAERS Safety Report 10534832 (Version 3)
Quarter: 2014Q4

REPORT INFORMATION
  Report Type: Spontaneous
  Country: JP (occurrence: JP)
  Receive Date: 20141022
  Receipt Date: 20141126
  Transmission Date: 20150529
  Serious: Yes (Death, Life-Threatening, Hospitalization)
  Sender: FDA-Public Use
  Company Number: JP-PFIZER INC-2014288046

PATIENT
  Age: 68 Year
  Sex: Female
  Weight: 38 kg

DRUGS (4)
  1. AFINITOR [Concomitant]
     Active Substance: EVEROLIMUS
     Dosage: 10 MG, DAILY
     Route: 048
     Dates: start: 20130415, end: 20130428
  2. SANDOSTATIN [Concomitant]
     Active Substance: OCTREOTIDE ACETATE
     Dosage: UNK
     Route: 058
     Dates: start: 20101108
  3. STREPTOZOCIN [Concomitant]
     Active Substance: STREPTOZOCIN
     Dosage: 700 MG, AT A TIME
     Route: 041
     Dates: start: 20111003, end: 20130128
  4. SUTENT [Suspect]
     Active Substance: SUNITINIB MALATE
     Indication: PANCREATIC NEUROENDOCRINE TUMOUR
     Dosage: 25 MG, DAILY
     Route: 048
     Dates: start: 20130521, end: 20131029

REACTIONS (6)
  - Pneumonia [Fatal]
  - Oesophageal varices haemorrhage [Recovering/Resolving]
  - Respiratory failure [Fatal]
  - Infectious pleural effusion [Fatal]
  - Disease progression [Fatal]
  - Pancreatic neuroendocrine tumour [Fatal]

NARRATIVE: CASE EVENT DATE: 20131107
